FAERS Safety Report 9701706 (Version 2)
Quarter: 2013Q4

REPORT INFORMATION
  Report Type: Report from Study
  Country: DE (occurrence: DE)
  Receive Date: 20131121
  Receipt Date: 20131121
  Transmission Date: 20140711
  Serious: Yes (Life-Threatening, Other)
  Sender: FDA-Public Use
  Company Number: DE-INCYTE CORPORATION-2013IN000797

PATIENT
  Age: 75 Year
  Sex: Male
  Weight: 55 kg

DRUGS (2)
  1. INCB018424 [Suspect]
     Indication: MYELOFIBROSIS
     Dosage: 15 MG PER DAY
     Route: 048
     Dates: start: 20130221
  2. BLOOD TRANSFUSION, AUXILIARY PRODUCTS [Concomitant]
     Dosage: UNK
     Dates: start: 20121031

REACTIONS (2)
  - Acute myeloid leukaemia [Not Recovered/Not Resolved]
  - Haematocrit decreased [Not Recovered/Not Resolved]
